FAERS Safety Report 18007472 (Version 2)
Quarter: 2020Q3

REPORT INFORMATION
  Report Type: Report from Study
  Country: AU (occurrence: AU)
  Receive Date: 20200710
  Receipt Date: 20200730
  Transmission Date: 20201103
  Serious: Yes (Other)
  Sender: FDA-Public Use
  Company Number: AU-BRISTOL-MYERS SQUIBB COMPANY-BMS-2020-053581

PATIENT
  Age: 61 Year
  Sex: Female

DRUGS (1)
  1. NIVOLUMAB [Suspect]
     Active Substance: NIVOLUMAB
     Indication: MALIGNANT MELANOMA
     Dosage: 480 MILLIGRAM ? 100MG IN 10ML X 4VIALS + 40MG IN 4ML X 2 VIALS, Q4WK
     Route: 042
     Dates: start: 20200114

REACTIONS (2)
  - Squamous cell carcinoma of skin [Recovered/Resolved]
  - Seborrhoeic keratosis [Unknown]

NARRATIVE: CASE EVENT DATE: 20200615
